FAERS Safety Report 9589288 (Version 1)
Quarter: 2013Q4

REPORT INFORMATION
  Report Type: Spontaneous
  Country: US (occurrence: US)
  Receive Date: 20131003
  Receipt Date: 20131003
  Transmission Date: 20140711
  Serious: No
  Sender: FDA-Public Use
  Company Number: US-AMGEN-USASP2012069422

PATIENT
  Age: 52 Year
  Sex: Female
  Weight: 88.44 kg

DRUGS (12)
  1. ENBREL [Suspect]
     Indication: RHEUMATOID ARTHRITIS
     Dosage: 50 MG, QWK
     Route: 058
  2. FISH OIL [Concomitant]
     Dosage: UNK
     Route: 048
  3. AMOXICILLIN [Concomitant]
     Dosage: 500 MG, UNK
     Route: 048
  4. NEURONTIN [Concomitant]
     Dosage: 100 MG, UNK
     Route: 048
  5. MOBIC [Concomitant]
     Dosage: 7.5 MG, UNK
     Route: 048
  6. FOLIC ACID [Concomitant]
     Dosage: UNK
     Route: 048
  7. METHOTREXATE [Concomitant]
     Dosage: 2.5 MG, UNK
     Route: 048
  8. CYCLOBENZAPRINE [Concomitant]
     Dosage: 5 MG, UNK
     Route: 048
  9. LORTAB                             /00607101/ [Concomitant]
     Dosage: UNK
     Route: 048
  10. IBUPROFEN [Concomitant]
     Dosage: 200 MG, UNK
     Route: 048
  11. VITAMIN B12                        /00056201/ [Concomitant]
     Dosage: 100 MUG, UNK
     Route: 048
  12. CALCIUM [Concomitant]
     Dosage: UNK
     Route: 048

REACTIONS (1)
  - Diverticulitis [Unknown]
